FAERS Safety Report 17561383 (Version 3)
Quarter: 2020Q2

REPORT INFORMATION
  Report Type: Spontaneous
  Country: US (occurrence: US)
  Receive Date: 20200319
  Receipt Date: 20200413
  Transmission Date: 20200713
  Serious: Yes (Other)
  Sender: FDA-Public Use
  Company Number: US-VERTEX PHARMACEUTICALS-2020-001779

PATIENT
  Age: 23 Year
  Sex: Female

DRUGS (5)
  1. TRIKAFTA [Suspect]
     Active Substance: ELEXACAFTOR\IVACAFTOR\TEZACAFTOR
     Indication: CYSTIC FIBROSIS
     Dosage: QUARTER OF ONE PILL, AM
     Route: 048
     Dates: start: 20191211, end: 20191214
  2. ELIQUIS [Suspect]
     Active Substance: APIXABAN
     Indication: INTERNAL HAEMORRHAGE
     Dosage: UNK
     Route: 065
  3. TRIKAFTA [Suspect]
     Active Substance: ELEXACAFTOR\IVACAFTOR\TEZACAFTOR
     Dosage: REGULAR DOSE
     Route: 048
     Dates: start: 2019, end: 20200327
  4. TRIKAFTA [Suspect]
     Active Substance: ELEXACAFTOR\IVACAFTOR\TEZACAFTOR
     Dosage: 1 ORANGE TABLET, QD PM
     Route: 048
     Dates: start: 20191213
  5. TRIKAFTA [Suspect]
     Active Substance: ELEXACAFTOR\IVACAFTOR\TEZACAFTOR
     Dosage: HALF PILL FOR 7 DAYS
     Route: 048
     Dates: start: 20191213, end: 20191221

REACTIONS (14)
  - Asthenia [Recovering/Resolving]
  - Cough [Not Recovered/Not Resolved]
  - Gastrointestinal disorder [Unknown]
  - Hepatic enzyme increased [Unknown]
  - White blood cell count decreased [Unknown]
  - Weight decreased [Unknown]
  - Decreased appetite [Recovering/Resolving]
  - Internal haemorrhage [Recovering/Resolving]
  - Restlessness [Unknown]
  - Irritability [Unknown]
  - Contusion [Recovering/Resolving]
  - Malaise [Unknown]
  - Fatigue [Recovering/Resolving]
  - Somnolence [Not Recovered/Not Resolved]

NARRATIVE: CASE EVENT DATE: 20200227
